FAERS Safety Report 8402584-5 (Version None)
Quarter: 2012Q2

REPORT INFORMATION
  Report Type: 
  Country: None (occurrence: None)
  Receive Date: 20120601
  Receipt Date: 20120517
  Transmission Date: 20120825
  Serious: Yes (Hospitalization)
  Sender: FDA-Public Use
  Company Number: US-ALEXION-A201200812

PATIENT
  Sex: Female
  Weight: 81.633 kg

DRUGS (6)
  1. NIMODIPINE [Concomitant]
  2. SOLIRIS [Suspect]
     Indication: HAEMOLYTIC URAEMIC SYNDROME
     Dosage: UNK, Q3-4 WEEKS
     Route: 042
     Dates: start: 20120410
  3. ENTOCORT EC [Concomitant]
  4. VERAPAMIL HCL [Concomitant]
  5. BENADRYL [Concomitant]
  6. SOLIRIS [Suspect]
     Dosage: UNK, Q2 WEEKS
     Route: 042
     Dates: end: 20120101

REACTIONS (6)
  - WHITE BLOOD CELL COUNT ABNORMAL [None]
  - HYPERSENSITIVITY [None]
  - HYPOTENSION [None]
  - INFLUENZA LIKE ILLNESS [None]
  - EOSINOPHILIA [None]
  - ARTHRALGIA [None]
